FAERS Safety Report 25484634 (Version 1)
Quarter: 2025Q2

REPORT INFORMATION
  Report Type: Spontaneous
  Country: US (occurrence: None)
  Receive Date: 20250627
  Receipt Date: 20250627
  Transmission Date: 20250717
  Serious: No
  Sender: FDA-CTU
  Company Number: None

PATIENT

DRUGS (2)
  1. GLASSIA [Suspect]
     Active Substance: .ALPHA.1-PROTEINASE INHIBITOR HUMAN
  2. XARELTO [Suspect]
     Active Substance: RIVAROXABAN

REACTIONS (4)
  - Loss of consciousness [None]
  - Intentional dose omission [None]
  - Fall [None]
  - Haemorrhage [None]
